FAERS Safety Report 24562960 (Version 1)
Quarter: 2024Q4

REPORT INFORMATION
  Report Type: Spontaneous
  Country: SE (occurrence: SE)
  Receive Date: 20241030
  Receipt Date: 20241030
  Transmission Date: 20250115
  Serious: Yes (Death, Hospitalization, Disabling)
  Sender: JOHNSON AND JOHNSON
  Company Number: None

PATIENT
  Age: 92 Year
  Sex: Female

DRUGS (1)
  1. RIVAROXABAN [Suspect]
     Active Substance: RIVAROXABAN
     Indication: Atrial fibrillation
     Route: 048

REACTIONS (6)
  - Gastrointestinal haemorrhage [Fatal]
  - Sepsis [Fatal]
  - Extravasation [Fatal]
  - Acidosis [Fatal]
  - Tachycardia [Fatal]
  - Cardiovascular disorder [Fatal]

NARRATIVE: CASE EVENT DATE: 20240901
